FAERS Safety Report 12009011 (Version 1)
Quarter: 2016Q1

REPORT INFORMATION
  Report Type: Report from Study
  Country: US (occurrence: US)
  Receive Date: 20160205
  Receipt Date: 20160205
  Transmission Date: 20160526
  Serious: No
  Sender: FDA-Public Use
  Company Number: US-ABBVIE-15K-163-1445390-00

PATIENT
  Age: 68 Year
  Sex: Female
  Weight: 79.45 kg

DRUGS (10)
  1. FOLIC ACID. [Concomitant]
     Active Substance: FOLIC ACID
     Indication: VITAMIN SUPPLEMENTATION
  2. PREDNISONE. [Concomitant]
     Active Substance: PREDNISONE
     Indication: RHEUMATOID ARTHRITIS
  3. FLUOXETINE [Concomitant]
     Active Substance: FLUOXETINE HYDROCHLORIDE
     Indication: BACK PAIN
  4. COUMADIN [Concomitant]
     Active Substance: WARFARIN SODIUM
     Indication: COAGULOPATHY
  5. HUMIRA [Suspect]
     Active Substance: ADALIMUMAB
     Indication: RHEUMATOID ARTHRITIS
     Route: 058
     Dates: start: 201409
  6. METHOTREXATE [Concomitant]
     Active Substance: METHOTREXATE
     Indication: RHEUMATOID ARTHRITIS
  7. MULTIVITAMIN [Concomitant]
     Active Substance: VITAMINS
     Indication: SUPPLEMENTATION THERAPY
  8. FLUOXETINE [Concomitant]
     Active Substance: FLUOXETINE HYDROCHLORIDE
     Indication: DEPRESSION
  9. CALCIUM WITH VITAMIN D [Concomitant]
     Active Substance: CALCIUM\VITAMIN D
     Indication: SUPPLEMENTATION THERAPY
  10. FLUOXETINE [Concomitant]
     Active Substance: FLUOXETINE HYDROCHLORIDE
     Indication: OSTEOARTHRITIS

REACTIONS (1)
  - Joint range of motion decreased [Not Recovered/Not Resolved]

NARRATIVE: CASE EVENT DATE: 201409
